FAERS Safety Report 17528703 (Version 1)
Quarter: 2020Q1

REPORT INFORMATION
  Report Type: Spontaneous
  Country: GB (occurrence: GB)
  Receive Date: 20200311
  Receipt Date: 20200311
  Transmission Date: 20200409
  Serious: Yes (Hospitalization)
  Sender: FDA-Public Use
  Company Number: GB-TEVA-2020-GB-1197231

PATIENT
  Age: 71 Year
  Sex: Female
  Weight: 96.7 kg

DRUGS (5)
  1. FERROUS SULFATE. [Concomitant]
     Active Substance: FERROUS SULFATE
  2. WARFARIN [Suspect]
     Active Substance: WARFARIN
     Route: 065
  3. LEVOTHYROXINE. [Concomitant]
     Active Substance: LEVOTHYROXINE
  4. DAKTACORT [Interacting]
     Active Substance: HYDROCORTISONE\MICONAZOLE NITRATE
     Indication: INTERTRIGO
     Dosage: APPLY THINLY. 1%/2%
     Route: 061
     Dates: start: 20200102, end: 20200116
  5. CALCIPOTRIOL [Concomitant]
     Active Substance: CALCIPOTRIENE

REACTIONS (7)
  - Abdominal pain [Unknown]
  - Drug interaction [Recovering/Resolving]
  - Contraindicated product administered [Unknown]
  - Contusion [Unknown]
  - Discoloured vomit [Unknown]
  - Malaise [Unknown]
  - Drug monitoring procedure not performed [Unknown]

NARRATIVE: CASE EVENT DATE: 20200116
